FAERS Safety Report 5109886-9 (Version None)
Quarter: 2006Q3

REPORT INFORMATION
  Report Type: 
  Country: None (occurrence: None)
  Receive Date: 20060919
  Receipt Date: 20060919
  Transmission Date: 20061208
  Serious: Yes (Hospitalization)
  Sender: FDA-Public Use
  Company Number: None

PATIENT
  Age: 71 Year
  Sex: Male
  Weight: 75 kg

DRUGS (15)
  1. DILTIAZEM HCL [Suspect]
     Indication: ATRIAL FIBRILLATION
     Dosage: 60 MG PO Q6H
     Route: 048
     Dates: start: 20060624, end: 20060625
  2. DILTIAZEM HCL [Suspect]
     Indication: ATRIAL FLUTTER
     Dosage: 60 MG PO Q6H
     Route: 048
     Dates: start: 20060624, end: 20060625
  3. CARVEDILOL [Suspect]
     Indication: ATRIAL FIBRILLATION
  4. COREG [Concomitant]
  5. DOXAZOSIN [Concomitant]
  6. LIPITOR [Concomitant]
  7. LANTUS [Concomitant]
  8. PROPYLPHENE [Concomitant]
  9. MAALOX FAST BLOCKER [Concomitant]
  10. SENOKOT [Concomitant]
  11. ASPIRIN [Concomitant]
  12. LIPITOR [Concomitant]
  13. CARDURA [Concomitant]
  14. PEPCID [Concomitant]
  15. GUAIFENESIN [Concomitant]

REACTIONS (1)
  - HEART RATE DECREASED [None]
